FAERS Safety Report 18276418 (Version 2)
Quarter: 2021Q2

REPORT INFORMATION
  Report Type: Spontaneous
  Country: CA (occurrence: CA)
  Receive Date: 20200917
  Receipt Date: 20210415
  Transmission Date: 20210717
  Serious: Yes (Hospitalization, Other)
  Sender: FDA-Public Use
  Company Number: CA-ASTRAZENECA-2020SF16711

PATIENT
  Age: 70 Year
  Sex: Male

DRUGS (6)
  1. DURVALUMAB. [Suspect]
     Active Substance: DURVALUMAB
     Indication: PANCREATIC CARCINOMA
     Dosage: 1500 MG ,1 EVERY 28 DAYS
     Route: 041
  2. DURVALUMAB. [Suspect]
     Active Substance: DURVALUMAB
     Indication: PANCREATIC CARCINOMA
     Dosage: 1500 MG ,1 EVERY 28 DAYS
     Route: 041
  3. GEMCITABINE. [Suspect]
     Active Substance: GEMCITABINE
     Indication: PANCREATIC CARCINOMA
     Dosage: 2200MG,3 EVERY 28 DAYS
     Route: 041
  4. ABRAXANE [Suspect]
     Active Substance: PACLITAXEL
     Indication: PANCREATIC CARCINOMA
     Dosage: 275 MG ,3 EVERY 28 DAYS
     Route: 041
  5. DALTEPARIN SODIUM [Concomitant]
     Active Substance: DALTEPARIN SODIUM
     Indication: PANCREATIC CARCINOMA
  6. TICILIMUMAB [Suspect]
     Active Substance: TREMELIMUMAB
     Indication: ANTICOAGULANT THERAPY
     Dosage: 75 MG ,1 EVERY 28 DAYS
     Route: 041

REACTIONS (4)
  - Gastrointestinal haemorrhage [Unknown]
  - Upper gastrointestinal haemorrhage [Not Recovered/Not Resolved]
  - Pancytopenia [Unknown]
  - Sepsis [Not Recovered/Not Resolved]
